FAERS Safety Report 25017252 (Version 1)
Quarter: 2025Q1

REPORT INFORMATION
  Report Type: Spontaneous
  Country: JP (occurrence: JP)
  Receive Date: 20250227
  Receipt Date: 20250227
  Transmission Date: 20250408
  Serious: Yes (Other)
  Sender: GALPHARM INTERNATIONAL
  Company Number: JP-MLMSERVICE-20250217-PI415045-00137-1

PATIENT
  Age: 7 Decade
  Sex: Male

DRUGS (1)
  1. ESOMEPRAZOLE MAGNESIUM [Suspect]
     Active Substance: ESOMEPRAZOLE MAGNESIUM
     Indication: Barrett^s oesophagus
     Dosage: 20 MG, QD
     Route: 048

REACTIONS (3)
  - Hypergastrinaemia [Recovered/Resolved]
  - Colorectal adenoma [Recovered/Resolved]
  - Gastric adenoma [Recovered/Resolved]
